FAERS Safety Report 4701550-0 (Version None)
Quarter: 2005Q2

REPORT INFORMATION
  Report Type: 
  Country: None (occurrence: None)
  Receive Date: 20050627
  Receipt Date: 20050616
  Transmission Date: 20051028
  Serious: Yes (Hospitalization)
  Sender: FDA-Public Use
  Company Number: 2005-01268

PATIENT
  Age: 71 Year
  Sex: Male
  Weight: 75 kg

DRUGS (3)
  1. VELCADE [Suspect]
     Indication: MULTIPLE MYELOMA
     Dosage: 2.60 MG INTRAVENOUS
     Route: 042
  2. MORPHINE [Concomitant]
  3. RANITIDINE [Concomitant]

REACTIONS (2)
  - HERPES VIRUS INFECTION [None]
  - MONOPLEGIA [None]
